FAERS Safety Report 11212383 (Version 1)
Quarter: 2015Q2

REPORT INFORMATION
  Report Type: Report from Study
  Country: DE (occurrence: DE)
  Receive Date: 20150623
  Receipt Date: 20150623
  Transmission Date: 20150821
  Serious: Yes (Hospitalization, Other)
  Sender: FDA-Public Use
  Company Number: DE-SANOFI-AVENTIS-2010SA031052

PATIENT
  Sex: Male
  Weight: 94.1 kg

DRUGS (7)
  1. CISPLATIN. [Suspect]
     Active Substance: CISPLATIN
     Indication: LARYNGEAL CANCER
     Dosage: FREQUENCY: 1X EVERY 28 DAYS
     Route: 041
     Dates: start: 20100424, end: 20100424
  2. CISPLATIN. [Suspect]
     Active Substance: CISPLATIN
     Indication: LARYNGEAL CANCER
     Route: 041
     Dates: start: 20100528, end: 20100528
  3. DOCETAXEL. [Suspect]
     Active Substance: DOCETAXEL
     Indication: LARYNGEAL CANCER
     Route: 041
     Dates: start: 20100528, end: 20100528
  4. CETUXIMAB [Concomitant]
     Active Substance: CETUXIMAB
     Indication: LARYNGEAL CANCER
     Dosage: FREQUENCY: 1X EVERY 28 DAYS
     Route: 041
     Dates: start: 20100424, end: 20100424
  5. CETUXIMAB [Concomitant]
     Active Substance: CETUXIMAB
     Indication: LARYNGEAL CANCER
     Route: 041
     Dates: start: 20100526, end: 20100526
  6. DOCETAXEL. [Suspect]
     Active Substance: DOCETAXEL
     Indication: LARYNGEAL CANCER
     Dosage: FREQUENCY: 1X EVERY 28 DAYS
     Route: 041
     Dates: start: 20100424, end: 20100424
  7. TAVANIC [Concomitant]
     Active Substance: LEVOFLOXACIN
     Indication: PRODUCT USED FOR UNKNOWN INDICATION
     Route: 048
     Dates: start: 20100526

REACTIONS (1)
  - Accidental overdose [Unknown]

NARRATIVE: CASE EVENT DATE: 20100528
